FAERS Safety Report 15841496 (Version 1)
Quarter: 2019Q1

REPORT INFORMATION
  Report Type: Spontaneous
  Country: US (occurrence: US)
  Receive Date: 20190118
  Receipt Date: 20190118
  Transmission Date: 20190417
  Serious: No
  Sender: FDA-Public Use
  Company Number: US-JNJFOC-20190105912

PATIENT
  Sex: Female
  Weight: 72.58 kg

DRUGS (1)
  1. DOXIL [Suspect]
     Active Substance: DOXORUBICIN HYDROCHLORIDE
     Indication: OVARIAN CANCER
     Route: 065
     Dates: start: 20180815

REACTIONS (3)
  - Insomnia [Unknown]
  - Skin fissures [Not Recovered/Not Resolved]
  - Rash pruritic [Unknown]
